FAERS Safety Report 4432796-7 (Version None)
Quarter: 2004Q3

REPORT INFORMATION
  Report Type: 
  Country: None (occurrence: None)
  Receive Date: 20040823
  Receipt Date: 20040809
  Transmission Date: 20050211
  Serious: Yes (Hospitalization)
  Sender: FDA-Public Use
  Company Number: 2003143219FR

PATIENT
  Age: 53 Year
  Sex: Female

DRUGS (1)
  1. DOXORUBICIN HCL [Suspect]
     Dosage: 90 MG, CYCLIC, IV
     Route: 042
     Dates: start: 20020820, end: 20020820

REACTIONS (4)
  - CHILLS [None]
  - HYPOTENSION [None]
  - PYREXIA [None]
  - SYNCOPE [None]
